FAERS Safety Report 7225021-5 (Version None)
Quarter: 2011Q1

REPORT INFORMATION
  Report Type: 
  Country: None (occurrence: None)
  Receive Date: 20110107
  Receipt Date: 20110107
  Transmission Date: 20110831
  Serious: No
  Sender: FDA-Public Use
  Company Number: None

PATIENT
  Age: 52 Year
  Sex: Female
  Weight: 45.3597 kg

DRUGS (3)
  1. L-TRYPTOPHAN 500MG SOURCE NATURALS [Suspect]
     Indication: DEPRESSION
     Dosage: 1 DAILY PO
     Route: 048
     Dates: start: 20110105, end: 20110106
  2. L-TRYPTOPHAN 500MG SOURCE NATURALS [Suspect]
     Indication: ANXIETY
     Dosage: 1 DAILY PO
     Route: 048
     Dates: start: 20110105, end: 20110106
  3. DIOVAN [Suspect]
     Indication: HYPERTENSION
     Dosage: 1 DAILY PO
     Route: 048
     Dates: start: 20101129, end: 20110104

REACTIONS (7)
  - INSOMNIA [None]
  - HEADACHE [None]
  - PALPITATIONS [None]
  - CONDITION AGGRAVATED [None]
  - MYALGIA [None]
  - FEELING ABNORMAL [None]
  - ASTHENIA [None]
